FAERS Safety Report 24437086 (Version 1)
Quarter: 2024Q4

REPORT INFORMATION
  Report Type: Spontaneous
  Country: JP (occurrence: JP)
  Receive Date: 20241015
  Receipt Date: 20241015
  Transmission Date: 20250114
  Serious: Yes (Other)
  Sender: PFIZER
  Company Number: JP-PFIZER INC-PV202400131896

PATIENT
  Age: 55 Year
  Weight: 43.6 kg

DRUGS (16)
  1. PACLITAXEL [Suspect]
     Active Substance: PACLITAXEL
     Indication: Lung neoplasm malignant
     Dosage: 270 MG
     Route: 042
     Dates: start: 20240305, end: 20240315
  2. BEVACIZUMAB [Suspect]
     Active Substance: BEVACIZUMAB
     Indication: Lung neoplasm malignant
     Dosage: UNK
     Dates: start: 20240305, end: 20240315
  3. CARBOPLATIN [Suspect]
     Active Substance: CARBOPLATIN
     Indication: Lung neoplasm malignant
     Dosage: UNK
     Dates: start: 20240305, end: 20240315
  4. TECENTRIQ [Suspect]
     Active Substance: ATEZOLIZUMAB
     Indication: Lung neoplasm malignant
     Dosage: 1200 MG
     Route: 042
     Dates: start: 20240305, end: 20240315
  5. ATORVASTATIN CALCIUM [Suspect]
     Active Substance: ATORVASTATIN CALCIUM
     Indication: Lung neoplasm malignant
     Dosage: 660 MG
     Route: 042
     Dates: start: 20240305, end: 20240315
  6. APREPITANT [Concomitant]
     Active Substance: APREPITANT
     Dosage: UNK
     Dates: start: 20240305, end: 20240305
  7. APREPITANT [Concomitant]
     Active Substance: APREPITANT
     Dosage: UNK
     Dates: start: 20240306, end: 20240307
  8. CARBOCYSTEINE [Concomitant]
     Active Substance: CARBOCYSTEINE
     Dosage: 450 MG
     Dates: start: 20240305, end: 20240305
  9. DECADRON [Concomitant]
     Active Substance: DEXAMETHASONE
     Dosage: UNK
     Dates: start: 20240306, end: 20240308
  10. CALCIUM CARBONATE\CHOLECALCIFEROL\MAGNESIUM CARBONATE [Concomitant]
     Active Substance: CALCIUM CARBONATE\CHOLECALCIFEROL\MAGNESIUM CARBONATE
     Dosage: 1 DF, 1X/DAY
     Dates: start: 20221221
  11. DEXAMETHASONE SODIUM PHOSPHATE [Concomitant]
     Active Substance: DEXAMETHASONE SODIUM PHOSPHATE
     Dosage: 6.6 MG, X3
  12. GASTER [Concomitant]
     Active Substance: FAMOTIDINE
     Dosage: 20 MG
  13. MAGNESIUM OXIDE [Concomitant]
     Active Substance: MAGNESIUM OXIDE
     Dosage: 250 MG, 3X/DAY
     Dates: start: 20240307, end: 20240315
  14. METHYLCOBALAMIN [Concomitant]
     Active Substance: METHYLCOBALAMIN
     Dosage: 500 UG, 3X/DAY
     Dates: start: 20240308, end: 20240315
  15. PALONOSETRON HYDROCHLORIDE [Concomitant]
     Active Substance: PALONOSETRON HYDROCHLORIDE
     Dosage: 0.75 MG
     Dates: start: 20240305, end: 20240305
  16. POLARAMINE [Concomitant]
     Active Substance: DEXCHLORPHENIRAMINE MALEATE
     Dosage: 5 MG

REACTIONS (10)
  - Neuropathy peripheral [Not Recovered/Not Resolved]
  - Erythema multiforme [Recovering/Resolving]
  - Drug eruption [Recovering/Resolving]
  - Constipation [Unknown]
  - Myalgia [Unknown]
  - Hypoaesthesia [Not Recovered/Not Resolved]
  - Lymphocyte percentage decreased [Unknown]
  - Epistaxis [Unknown]
  - Abdominal discomfort [Not Recovered/Not Resolved]
  - Paronychia [Unknown]

NARRATIVE: CASE EVENT DATE: 20240307
